FAERS Safety Report 6904848-0 (Version None)
Quarter: 2010Q3

REPORT INFORMATION
  Report Type: 
  Country: None (occurrence: None)
  Receive Date: 20100804
  Receipt Date: 20090722
  Transmission Date: 20110219
  Serious: No
  Sender: FDA-Public Use
  Company Number: US-PFIZER INC-2009233696

PATIENT
  Sex: Male
  Weight: 77.098 kg

DRUGS (6)
  1. LYRICA [Suspect]
     Indication: NEUROPATHY PERIPHERAL
     Dosage: 75 MG, 3X/DAY
     Route: 048
     Dates: end: 20090625
  2. ALTACE [Concomitant]
     Indication: HYPERTENSION
     Dosage: UNK
  3. NEXIUM [Concomitant]
     Indication: GASTROOESOPHAGEAL REFLUX DISEASE
     Dosage: UNK
  4. LIPITOR [Concomitant]
     Dosage: UNK
  5. PLAVIX [Concomitant]
     Indication: CAROTID ARTERY DISEASE
     Dosage: UNK
  6. CADUET [Concomitant]
     Dosage: 20 MG, 1X/DAY

REACTIONS (5)
  - ANXIETY [None]
  - CIRCUMORAL OEDEMA [None]
  - FEELING ABNORMAL [None]
  - LIP SWELLING [None]
  - WITHDRAWAL SYNDROME [None]
